FAERS Safety Report 22280789 (Version 1)
Quarter: 2023Q2

REPORT INFORMATION
  Report Type: Spontaneous
  Country: US (occurrence: US)
  Receive Date: 20230503
  Receipt Date: 20230503
  Transmission Date: 20230721
  Serious: No
  Sender: FDA-Public Use
  Company Number: US-JNJFOC-20230453854

PATIENT

DRUGS (2)
  1. RISPERDAL [Suspect]
     Active Substance: RISPERIDONE
     Indication: Product used for unknown indication
     Route: 065
     Dates: start: 202002
  2. RISPERDAL [Suspect]
     Active Substance: RISPERIDONE
     Dosage: INCREASED TO 1.0MG ON 07-FEB-2023 OR 08-FEB-2023
     Route: 065
     Dates: start: 202002

REACTIONS (1)
  - Insomnia [Unknown]
